FAERS Safety Report 19210424 (Version 1)
Quarter: 2021Q2

REPORT INFORMATION
  Report Type: Spontaneous
  Country: US (occurrence: US)
  Receive Date: 20210504
  Receipt Date: 20210504
  Transmission Date: 20210717
  Serious: No
  Sender: FDA-Public Use
  Company Number: US-TEVA-2021-US-1905143

PATIENT
  Sex: Male

DRUGS (1)
  1. TORASEMIDE [Suspect]
     Active Substance: TORSEMIDE
     Dosage: ONE AT 7 AM WITH 5 OTHER UNKNOWN MEDICATIONS AND ANOTHER TABLET AT 11 AM
     Route: 065

REACTIONS (3)
  - Product quality issue [Unknown]
  - Therapeutic product effect delayed [Unknown]
  - Product solubility abnormal [Unknown]
